FAERS Safety Report 9238434 (Version 1)
Quarter: 2013Q2

REPORT INFORMATION
  Report Type: Spontaneous
  Country: US (occurrence: US)
  Receive Date: 20130418
  Receipt Date: 20130418
  Transmission Date: 20140414
  Serious: Yes (Other)
  Sender: FDA-Public Use
  Company Number: US-ELI_LILLY_AND_COMPANY-US201304003759

PATIENT
  Sex: Female

DRUGS (1)
  1. HUMULIN REGULAR [Suspect]
     Dosage: UNK, UNKNOWN

REACTIONS (2)
  - Throat tightness [Unknown]
  - Drug hypersensitivity [Unknown]
